FAERS Safety Report 11913008 (Version 1)
Quarter: 2016Q1

REPORT INFORMATION
  Report Type: Spontaneous
  Country: US (occurrence: US)
  Receive Date: 20160113
  Receipt Date: 20160113
  Transmission Date: 20160526
  Serious: No
  Sender: FDA-Public Use
  Company Number: US-BAYER-2015-494568

PATIENT
  Age: 87 Year
  Sex: Male
  Weight: 64.4 kg

DRUGS (6)
  1. MINITRAN [Concomitant]
     Active Substance: NITROGLYCERIN
  2. PHILLIPS^ LAXATIVE DIETARY SUPPLEMENT [Suspect]
     Active Substance: MAGNESIUM OXIDE
     Indication: CONSTIPATION
     Dosage: UNK
     Route: 048
     Dates: start: 2015
  3. MILK OF MAGNESIA CHERRY [Suspect]
     Active Substance: MAGNESIUM HYDROXIDE
     Indication: CONSTIPATION
     Dosage: 1 DF, QD
     Route: 048
  4. CARVEDILOL. [Concomitant]
     Active Substance: CARVEDILOL
     Dosage: UNK
  5. SIMVASTATIN. [Concomitant]
     Active Substance: SIMVASTATIN
  6. BAYER LOW DOSE [Concomitant]
     Active Substance: ASPIRIN

REACTIONS (3)
  - Drug ineffective [None]
  - Drug ineffective [None]
  - Constipation [None]

NARRATIVE: CASE EVENT DATE: 20151222
